FAERS Safety Report 20581941 (Version 1)
Quarter: 2022Q1

REPORT INFORMATION
  Report Type: Report from Study
  Country: US (occurrence: US)
  Receive Date: 20220311
  Receipt Date: 20220311
  Transmission Date: 20220423
  Serious: Yes (Hospitalization)
  Sender: FDA-Public Use
  Company Number: US-TAKEDA-2021TUS077516

PATIENT
  Sex: Male
  Weight: 15 kg

DRUGS (12)
  1. HUMAN IMMUNOGLOBULIN G [Suspect]
     Active Substance: HUMAN IMMUNOGLOBULIN G
     Indication: DiGeorge^s syndrome
     Dosage: 5 GRAM, 1/WEEK
     Route: 058
     Dates: start: 20211115
  2. HUMAN IMMUNOGLOBULIN G [Suspect]
     Active Substance: HUMAN IMMUNOGLOBULIN G
     Indication: Immunodeficiency common variable
  3. ACETAMINOPHEN [Concomitant]
     Active Substance: ACETAMINOPHEN
  4. DIPHENHYDRAMINE [Concomitant]
     Active Substance: DIPHENHYDRAMINE
  5. LIDOCAINE [Concomitant]
     Active Substance: LIDOCAINE
  6. EPINEPHRINE [Concomitant]
     Active Substance: EPINEPHRINE
  7. PROMACTA [Concomitant]
     Active Substance: ELTROMBOPAG OLAMINE
  8. PEPCID [Concomitant]
     Active Substance: FAMOTIDINE
  9. IRON [Concomitant]
     Active Substance: IRON
  10. OMNITROPE [Concomitant]
     Active Substance: SOMATROPIN
  11. EPOGEN [Concomitant]
     Active Substance: ERYTHROPOIETIN
  12. AZITHROMYCIN [Concomitant]
     Active Substance: AZITHROMYCIN

REACTIONS (3)
  - Intra-abdominal fluid collection [Unknown]
  - Blood albumin decreased [Unknown]
  - Infusion site extravasation [Unknown]
